FAERS Safety Report 6558025-6 (Version None)
Quarter: 2010Q1

REPORT INFORMATION
  Report Type: 
  Country: None (occurrence: None)
  Receive Date: 20100129
  Receipt Date: 20100121
  Transmission Date: 20100710
  Serious: Yes (Disabling)
  Sender: FDA-Public Use
  Company Number: DE-ROCHE-679860

PATIENT
  Sex: Female
  Weight: 75 kg

DRUGS (5)
  1. HERCEPTIN [Suspect]
     Dosage: MONOTHERAPY
     Route: 042
     Dates: start: 20090722
  2. LETROZOLE [Concomitant]
     Route: 048
     Dates: start: 20090801
  3. ASPIRIN [Concomitant]
     Indication: THROMBOSIS PROPHYLAXIS
     Route: 048
  4. BLOPRESS [Concomitant]
     Indication: HYPERTENSION
     Route: 048
  5. LEVOTHYROXINE SODIUM [Concomitant]
     Indication: HYPERTHYROIDISM
     Route: 048

REACTIONS (1)
  - RETINAL DETACHMENT [None]
